FAERS Safety Report 13376179 (Version 1)
Quarter: 2017Q1

REPORT INFORMATION
  Report Type: Spontaneous
  Country: US (occurrence: US)
  Receive Date: 20170328
  Receipt Date: 20170328
  Transmission Date: 20170429
  Serious: Yes (Hospitalization, Other)
  Sender: FDA-Public Use
  Company Number: US-SHIRE-US201706504

PATIENT
  Sex: Female
  Weight: 91 kg

DRUGS (22)
  1. VALIUM [Concomitant]
     Active Substance: DIAZEPAM
     Indication: PRODUCT USED FOR UNKNOWN INDICATION
     Dosage: 5 MG, UNKNOWN
     Route: 065
  2. AGRYLIN [Suspect]
     Active Substance: ANAGRELIDE HYDROCHLORIDE
     Dosage: 1 MG, 2X/DAY:BID
     Route: 048
     Dates: start: 2016
  3. CLOPIDOGREL [Concomitant]
     Active Substance: CLOPIDOGREL BISULFATE
     Indication: PRODUCT USED FOR UNKNOWN INDICATION
     Dosage: UNK, UNKNOWN
     Route: 065
  4. PREDNISONE. [Concomitant]
     Active Substance: PREDNISONE
     Indication: PRODUCT USED FOR UNKNOWN INDICATION
     Dosage: 10 MG, UNKNOWN
     Route: 065
  5. MYLANTA [Concomitant]
     Active Substance: ALUMINUM HYDROXIDE\DIMETHICONE\MAGNESIUM HYDROXIDE
     Indication: PRODUCT USED FOR UNKNOWN INDICATION
     Dosage: UNK, UNKNOWN
     Route: 065
  6. HYDREA [Suspect]
     Active Substance: HYDROXYUREA
     Indication: ESSENTIAL THROMBOCYTHAEMIA
     Dosage: 2000 MG, 1X/DAY:QD (FOUR 500 MG IN THE AM)
     Route: 048
     Dates: end: 2016
  7. HYDREA [Suspect]
     Active Substance: HYDROXYUREA
     Dosage: 1500 MG, 1X/DAY:QD (THREE 500 MG IN THE PM)
     Route: 048
  8. ZOFRAN [Concomitant]
     Active Substance: ONDANSETRON HYDROCHLORIDE
     Indication: PRODUCT USED FOR UNKNOWN INDICATION
     Dosage: UNK, UNKNOWN
     Route: 065
  9. AGRYLIN [Suspect]
     Active Substance: ANAGRELIDE HYDROCHLORIDE
     Indication: ESSENTIAL THROMBOCYTHAEMIA
     Dosage: 0.5 MG, 4X/DAY:QID
     Route: 048
     Dates: end: 2016
  10. JAKAFI [Suspect]
     Active Substance: RUXOLITINIB
     Dosage: 5 MG, 1X/DAY:QD (AT 9 PM)
     Route: 048
  11. MAGNESIUM OXIDE. [Concomitant]
     Active Substance: MAGNESIUM OXIDE
     Indication: PRODUCT USED FOR UNKNOWN INDICATION
     Dosage: 400 MG, UNKNOWN
     Route: 065
  12. PLAVIX [Concomitant]
     Active Substance: CLOPIDOGREL BISULFATE
     Indication: PRODUCT USED FOR UNKNOWN INDICATION
     Dosage: 75 MG, UNKNOWN
     Route: 065
  13. COMPAZINE                          /00013302/ [Concomitant]
     Active Substance: PROCHLORPERAZINE EDISYLATE
     Indication: PRODUCT USED FOR UNKNOWN INDICATION
     Dosage: UNK, UNKNOWN
     Route: 065
  14. NORCO [Concomitant]
     Active Substance: ACETAMINOPHEN\HYDROCODONE BITARTRATE
     Indication: PRODUCT USED FOR UNKNOWN INDICATION
     Dosage: 10/325 MG, UNKNOWN
     Route: 065
  15. OXYCODONE [Concomitant]
     Active Substance: OXYCODONE
     Indication: PRODUCT USED FOR UNKNOWN INDICATION
     Dosage: UNK, UNKNOWN
     Route: 065
  16. DILAUDID [Concomitant]
     Active Substance: HYDROMORPHONE HYDROCHLORIDE
     Indication: PRODUCT USED FOR UNKNOWN INDICATION
     Dosage: UNK, UNKNOWN
     Route: 065
  17. BENADRYL [Concomitant]
     Active Substance: DIPHENHYDRAMINE HYDROCHLORIDE
     Indication: PRODUCT USED FOR UNKNOWN INDICATION
     Dosage: UNK, UNKNOWN
     Route: 065
  18. DECADRON [Concomitant]
     Active Substance: DEXAMETHASONE
     Indication: PRODUCT USED FOR UNKNOWN INDICATION
     Dosage: UNK, UNKNOWN
     Route: 065
  19. JAKAFI [Suspect]
     Active Substance: RUXOLITINIB
     Indication: ESSENTIAL THROMBOCYTHAEMIA
     Dosage: 5 MG, 2X/DAY:BID
     Route: 048
  20. JAKAFI [Suspect]
     Active Substance: RUXOLITINIB
     Dosage: 10 MG, 1X/DAY:QD (TWO 5 MG TABLETS AT 9 AM)
     Route: 048
  21. MEDROL [Concomitant]
     Active Substance: METHYLPREDNISOLONE
     Indication: PRODUCT USED FOR UNKNOWN INDICATION
     Dosage: 4 MG, UNKNOWN
     Route: 065
  22. LIDOCAINE. [Concomitant]
     Active Substance: LIDOCAINE
     Indication: PRODUCT USED FOR UNKNOWN INDICATION
     Dosage: UNK, UNKNOWN
     Route: 065

REACTIONS (16)
  - Ataxia [Unknown]
  - Drug intolerance [Unknown]
  - Asthenia [Unknown]
  - Visual impairment [Recovering/Resolving]
  - Supraventricular tachycardia [Unknown]
  - Hyperhidrosis [Unknown]
  - Platelet count increased [Recovering/Resolving]
  - Drug hypersensitivity [Unknown]
  - Nasopharyngitis [Unknown]
  - Skin lesion [Recovered/Resolved]
  - Anaemia [Unknown]
  - Pain in extremity [Unknown]
  - Nausea [Unknown]
  - Vomiting [Unknown]
  - Bone pain [Unknown]
  - Malaise [Unknown]
